FAERS Safety Report 10210487 (Version 1)
Quarter: 2014Q2

REPORT INFORMATION
  Report Type: Spontaneous
  Country: US (occurrence: US)
  Receive Date: 20140602
  Receipt Date: 20140602
  Transmission Date: 20141212
  Serious: Yes (Other)
  Sender: FDA-Public Use
  Company Number: US-ACTAVIS-2014-11063

PATIENT
  Age: 60 Year
  Sex: Male
  Weight: 79 kg

DRUGS (3)
  1. DULOXETINE HYDROCHLORIDE (AELLC) [Suspect]
     Indication: DEPRESSION
     Dosage: 3 DF, DAILY
     Route: 048
     Dates: start: 201404
  2. NEXIUM                             /01479302/ [Concomitant]
     Indication: BARRETT^S OESOPHAGUS
     Dosage: 40 MG, BID
     Route: 048
  3. METFORMIN [Concomitant]
     Indication: GLUCOSE TOLERANCE IMPAIRED
     Dosage: 500 MG, DAILY
     Route: 048

REACTIONS (5)
  - Suicidal ideation [Recovering/Resolving]
  - Drug ineffective [Recovering/Resolving]
  - Emotional disorder [Recovering/Resolving]
  - Unemployment [Unknown]
  - Crying [Recovering/Resolving]
